FAERS Safety Report 4642024-5 (Version None)
Quarter: 2005Q2

REPORT INFORMATION
  Report Type: 
  Country: None (occurrence: None)
  Receive Date: 20050420
  Receipt Date: 20050407
  Transmission Date: 20051028
  Serious: Yes (Life-Threatening, Hospitalization)
  Sender: FDA-Public Use
  Company Number: 2005057500

PATIENT
  Age: 62 Year
  Sex: Male
  Weight: 65.7716 kg

DRUGS (8)
  1. SOLU-CORTEF [Suspect]
     Indication: PROPHYLAXIS OF NAUSEA AND VOMITING
     Dosage: 100 MG (100 MG, CYCLICAL), INTRAVENOUS
     Route: 042
     Dates: start: 20040621, end: 20050321
  2. FLUOROURACIL [Concomitant]
  3. OXALIPLATIN (OXALIPLATIN) [Concomitant]
  4. LEUCOVORIN CALCIUM [Concomitant]
  5. IRINOTECAN (IRINOTECAN) [Concomitant]
  6. DEXAMETHASONE [Concomitant]
  7. DOLASETRON MESILATE (DOLASERTON MESILATE) [Concomitant]
  8. ATROPINE [Concomitant]

REACTIONS (3)
  - EPISTAXIS [None]
  - MOUTH HAEMORRHAGE [None]
  - THROMBOCYTOPENIA [None]
